FAERS Safety Report 25363316 (Version 1)
Quarter: 2025Q2

REPORT INFORMATION
  Report Type: Spontaneous
  Country: MY (occurrence: MY)
  Receive Date: 20250527
  Receipt Date: 20250527
  Transmission Date: 20250717
  Serious: Yes (Death)
  Sender: OTSUKA
  Company Number: MY-MMM-Otsuka-Q4M6ZTNR

PATIENT
  Age: 78 Year
  Sex: Male

DRUGS (1)
  1. SAMSCA [Suspect]
     Active Substance: TOLVAPTAN
     Indication: Hyponatraemia
     Dosage: 7.5 MG, QD (7.5 MG OD/SINGLE DOSE)
     Route: 065

REACTIONS (1)
  - Death [Fatal]
